FAERS Safety Report 5315910-0 (Version None)
Quarter: 2007Q2

REPORT INFORMATION
  Report Type: 
  Country: None (occurrence: None)
  Receive Date: 20070503
  Receipt Date: 20070424
  Transmission Date: 20071010
  Serious: Yes (Life-Threatening, Hospitalization)
  Sender: FDA-Public Use
  Company Number: ES-PFIZER INC-2007032982

PATIENT
  Age: 59 Year
  Sex: Male

DRUGS (12)
  1. ALDACTONE [Suspect]
     Route: 048
     Dates: start: 20070315, end: 20070322
  2. SEGURIL [Interacting]
     Route: 048
     Dates: start: 20070315, end: 20070322
  3. ANTIINFLAMMATORY/ANTIRHEUMATIC NON-STEROIDS [Interacting]
     Indication: ARTHROPATHY
     Dosage: FREQ:PRN
     Route: 048
     Dates: start: 20070311, end: 20070101
  4. ENALAPRIL [Concomitant]
     Route: 048
  5. SUSTIVA [Concomitant]
     Indication: HIV INFECTION
     Route: 048
  6. KALETRA [Concomitant]
     Indication: HIV INFECTION
     Route: 048
  7. SEPTRA [Concomitant]
     Dosage: TEXT:80/160 MG-FREQ:ONE TABLET DAILY
     Route: 048
  8. COROPRES [Concomitant]
     Route: 048
  9. UNIKET [Concomitant]
     Route: 048
  10. ADIRO [Concomitant]
     Route: 048
  11. OMEPRAZOLE [Concomitant]
     Route: 048
  12. ZIAGEN [Concomitant]
     Route: 048

REACTIONS (3)
  - DRUG INTERACTION [None]
  - HYPERKALAEMIA [None]
  - RENAL FAILURE ACUTE [None]
